FAERS Safety Report 8873443 (Version 1)
Quarter: 2012Q4

REPORT INFORMATION
  Report Type: 
  Country: US (occurrence: US)
  Receive Date: 20121030
  Receipt Date: 20121030
  Transmission Date: 20130627
  Serious: Yes (Other)
  Sender: FDA-Public Use
  Company Number: US-ELI_LILLY_AND_COMPANY-US201210006402

PATIENT
  Age: 62 Year
  Sex: Male

DRUGS (4)
  1. EFFIENT [Suspect]
     Indication: STENT PLACEMENT
     Dosage: 10 mg, qd
     Dates: start: 201103, end: 20120928
  2. POTASSIUM CITRATE [Concomitant]
  3. PEPCID [Concomitant]
  4. ASPIRIN [Concomitant]
     Dosage: 325 DF, UNK

REACTIONS (3)
  - Gastrointestinal haemorrhage [Recovered/Resolved]
  - Road traffic accident [Recovered/Resolved]
  - Contusion [Unknown]
